FAERS Safety Report 22187167 (Version 6)
Quarter: 2024Q1

REPORT INFORMATION
  Report Type: Spontaneous
  Country: FR (occurrence: FR)
  Receive Date: 20230407
  Receipt Date: 20240328
  Transmission Date: 20240410
  Serious: Yes (Death, Other)
  Sender: FDA-Public Use
  Company Number: None

PATIENT
  Age: 62 Year
  Sex: Male
  Weight: 68 kg

DRUGS (9)
  1. ELIQUIS [Suspect]
     Active Substance: APIXABAN
     Indication: Thrombosis
     Dosage: 5 MG, 2X/DAY
     Route: 048
     Dates: start: 202209, end: 20221227
  2. INLYTA [Suspect]
     Active Substance: AXITINIB
     Indication: Renal cancer
     Dosage: 5 MG MORNING AND EVENING
     Route: 048
     Dates: start: 20221118, end: 20221125
  3. INLYTA [Suspect]
     Active Substance: AXITINIB
     Dosage: 7 MG MORNING AND EVENING
     Route: 048
     Dates: start: 20221126, end: 20221203
  4. INLYTA [Suspect]
     Active Substance: AXITINIB
     Dosage: 10 MG MORNING AND EVENING
     Dates: start: 20221204, end: 20221227
  5. PRIMPERAN [Concomitant]
     Active Substance: METOCLOPRAMIDE HYDROCHLORIDE
     Dosage: UNK
  6. MIRTAZAPINE [Concomitant]
     Active Substance: MIRTAZAPINE
     Dosage: UNK
  7. KETODERM [KETOCONAZOLE] [Concomitant]
     Dosage: UNK
  8. LEVOTHYROXINE [Concomitant]
     Active Substance: LEVOTHYROXINE\LEVOTHYROXINE SODIUM
     Dosage: UNK
  9. OXYCODONE HYDROCHLORIDE [Concomitant]
     Active Substance: OXYCODONE HYDROCHLORIDE
     Dosage: UNK

REACTIONS (4)
  - Haemoptysis [Fatal]
  - Acute respiratory distress syndrome [Fatal]
  - Decreased appetite [Not Recovered/Not Resolved]
  - Abdominal pain [Recovering/Resolving]

NARRATIVE: CASE EVENT DATE: 20221129
